FAERS Safety Report 21621898 (Version 3)
Quarter: 2022Q4

REPORT INFORMATION
  Report Type: Spontaneous
  Country: US (occurrence: US)
  Receive Date: 20221121
  Receipt Date: 20221128
  Transmission Date: 20230113
  Serious: Yes (Other)
  Sender: FDA-Public Use
  Company Number: US-PFIZER INC-PV202200106364

PATIENT
  Age: 58 Year
  Sex: Female

DRUGS (2)
  1. IBRANCE [Suspect]
     Active Substance: PALBOCICLIB
     Dosage: 75 MG
     Dates: start: 20220816, end: 20221117
  2. IBRANCE [Suspect]
     Active Substance: PALBOCICLIB
     Dosage: 75 MG, ALTERNATE DAY (75MG EVERY OTHER DAY CONTINUOUSLY)
     Dates: start: 20221121

REACTIONS (2)
  - Neutropenia [Unknown]
  - Off label use [Unknown]

NARRATIVE: CASE EVENT DATE: 20220101
